FAERS Safety Report 4902545-4 (Version None)
Quarter: 2006Q1

REPORT INFORMATION
  Report Type: 
  Country: None (occurrence: None)
  Receive Date: 20060202
  Receipt Date: 20060120
  Transmission Date: 20060701
  Serious: Yes (Hospitalization, Disabling, Other)
  Sender: FDA-Public Use
  Company Number: 2006-DE-00345GD

PATIENT
  Age: 67 Year
  Sex: Male

DRUGS (2)
  1. CODEINE (CODEINE) [Suspect]
     Indication: PHANTOM PAIN
     Dosage: 160-200 MG/D
  2. MORPHINE [Suspect]
     Indication: PHANTOM PAIN
     Dosage: 120 MG, PO
     Route: 048

REACTIONS (5)
  - GENERAL PHYSICAL HEALTH DETERIORATION [None]
  - ISCHAEMIC LIMB PAIN [None]
  - PERIPHERAL VASCULAR DISORDER [None]
  - SEDATION [None]
  - URINARY RETENTION [None]
